FAERS Safety Report 25170920 (Version 1)
Quarter: 2025Q2

REPORT INFORMATION
  Report Type: Spontaneous
  Country: US (occurrence: US)
  Receive Date: 20250408
  Receipt Date: 20250408
  Transmission Date: 20250717
  Serious: Yes (Other)
  Sender: GRANULES INDIA
  Company Number: US-GRANULES-US-2025GRASPO00154

PATIENT
  Age: 8 Year
  Sex: Male
  Weight: 58 kg

DRUGS (1)
  1. DEXMETHYLPHENIDATE HYDROCHLORIDE [Suspect]
     Active Substance: DEXMETHYLPHENIDATE HYDROCHLORIDE
     Indication: Product used for unknown indication
     Route: 048
     Dates: start: 202502, end: 20250328

REACTIONS (3)
  - Intentional self-injury [Not Recovered/Not Resolved]
  - Aggression [Not Recovered/Not Resolved]
  - Product substitution issue [Unknown]

NARRATIVE: CASE EVENT DATE: 20250101
